FAERS Safety Report 11104618 (Version 4)
Quarter: 2015Q3

REPORT INFORMATION
  Report Type: Spontaneous
  Country: US (occurrence: US)
  Receive Date: 20150511
  Receipt Date: 20150812
  Transmission Date: 20151125
  Serious: No
  Sender: FDA-Public Use
  Company Number: US-AMGEN-USASL2015043744

PATIENT
  Age: 51 Year
  Sex: Female

DRUGS (1)
  1. ENBREL [Suspect]
     Active Substance: ETANERCEPT
     Indication: RHEUMATOID ARTHRITIS
     Dosage: 50 MG, WEEKLY
     Route: 065
     Dates: start: 20150420

REACTIONS (11)
  - Injection site pain [Not Recovered/Not Resolved]
  - Respiratory tract congestion [Recovered/Resolved]
  - Pain in extremity [Not Recovered/Not Resolved]
  - Musculoskeletal discomfort [Recovering/Resolving]
  - Injection site erythema [Recovered/Resolved]
  - Atypical pneumonia [Recovered/Resolved]
  - Arthralgia [Not Recovered/Not Resolved]
  - Swelling [Recovering/Resolving]
  - Sinusitis [Recovered/Resolved]
  - Lymphadenopathy [Recovered/Resolved]
  - Injection site reaction [Recovered/Resolved]

NARRATIVE: CASE EVENT DATE: 2015
